FAERS Safety Report 13335222 (Version 1)
Quarter: 2017Q1

REPORT INFORMATION
  Report Type: Report from Study
  Country: JP (occurrence: JP)
  Receive Date: 20170315
  Receipt Date: 20170315
  Transmission Date: 20170428
  Serious: Yes (Hospitalization)
  Sender: FDA-Public Use
  Company Number: JP-AMGEN-JPNCT2017038432

PATIENT
  Age: 84 Year
  Sex: Male
  Weight: 46 kg

DRUGS (11)
  1. SYMMETREL [Suspect]
     Active Substance: AMANTADINE HYDROCHLORIDE
     Indication: CEREBRAL INFARCTION
     Dosage: 50 MG, TID
     Route: 048
     Dates: start: 20090812
  2. LUDIOMIL [Suspect]
     Active Substance: MAPROTILINE HYDROCHLORIDE
     Indication: DEPRESSION
     Dosage: 25 MG, QD
     Route: 048
     Dates: start: 2005
  3. WARFARIN [Suspect]
     Active Substance: WARFARIN
     Indication: DEEP VEIN THROMBOSIS
     Dosage: 1.5 MG, QD
     Route: 048
     Dates: start: 20090523
  4. SENNA [Suspect]
     Active Substance: SENNA LEAF\SENNOSIDES\SENNOSIDES A AND B
     Indication: CONSTIPATION
     Dosage: 80 MG, UNK
     Route: 048
     Dates: start: 20090520
  5. ETIZOLAM [Suspect]
     Active Substance: ETIZOLAM
     Indication: DEPRESSION
     Dosage: 1 MG, UNK
     Route: 048
     Dates: start: 2005
  6. EDIROL [Suspect]
     Active Substance: ELDECALCITOL
     Indication: OSTEOPOROSIS
     Dosage: 0.75 MUG, QD
     Route: 048
     Dates: start: 20160106
  7. METLIGINE [Suspect]
     Active Substance: MIDODRINE HYDROCHLORIDE
     Indication: ORTHOSTATIC HYPOTENSION
     Dosage: 2 MG, BID
     Route: 048
     Dates: start: 20100707
  8. FERROMIA [Suspect]
     Active Substance: FERROUS CITRATE
     Indication: IRON DEFICIENCY ANAEMIA
     Dosage: 50 MG, QD
     Route: 048
     Dates: start: 20160517
  9. CEROCRAL [Suspect]
     Active Substance: IFENPRODIL
     Indication: CEREBRAL INFARCTION
     Dosage: 20 MG, TID
     Route: 048
     Dates: start: 20090812
  10. DARBEPOETIN ALFA [Suspect]
     Active Substance: DARBEPOETIN ALFA
     Indication: PRODUCT USED FOR UNKNOWN INDICATION
     Dosage: 30 MUG, Q4WK
     Route: 065
  11. CRESTOR [Suspect]
     Active Substance: ROSUVASTATIN CALCIUM
     Indication: DYSLIPIDAEMIA
     Dosage: 2.5 MG, QD
     Route: 048
     Dates: start: 20090520

REACTIONS (1)
  - Urinary tract infection [Not Recovered/Not Resolved]

NARRATIVE: CASE EVENT DATE: 20170102
